FAERS Safety Report 10154994 (Version 2)
Quarter: 2014Q2

REPORT INFORMATION
  Report Type: Spontaneous
  Country: JP (occurrence: JP)
  Receive Date: 20140506
  Receipt Date: 20140506
  Transmission Date: 20141212
  Serious: Yes (Other)
  Sender: FDA-Public Use
  Company Number: JP-BEH-2014040454

PATIENT
  Age: 65 Year
  Sex: Male

DRUGS (7)
  1. ALBUMINAR 25% [Suspect]
     Indication: OEDEMA PERIPHERAL
     Dosage: 50 ML
     Route: 042
     Dates: start: 20140124, end: 20140124
  2. ALBUMINAR 25% [Suspect]
     Indication: OEDEMA PERIPHERAL
     Dosage: 50 ML
     Route: 042
     Dates: start: 20140124, end: 20140124
  3. MINOCYCLNE [Concomitant]
  4. ELNEOPA [Concomitant]
  5. RINDERON [Concomitant]
  6. NAIXAN [Concomitant]
  7. CYTOTEC [Concomitant]

REACTIONS (3)
  - Dyspnoea [Recovering/Resolving]
  - Oxygen saturation decreased [Recovering/Resolving]
  - Malaise [Recovering/Resolving]
